FAERS Safety Report 14137770 (Version 1)
Quarter: 2017Q4

REPORT INFORMATION
  Report Type: Spontaneous
  Country: IL (occurrence: IL)
  Receive Date: 20171027
  Receipt Date: 20171027
  Transmission Date: 20180321
  Serious: Yes (Hospitalization, Other)
  Sender: FDA-Public Use
  Company Number: IL-009507513-1710ISR011534

PATIENT
  Sex: Male

DRUGS (2)
  1. JANUET [Suspect]
     Active Substance: METFORMIN HYDROCHLORIDE\SITAGLIPTIN PHOSPHATE
     Dosage: 50/500
     Route: 048
     Dates: start: 2017
  2. JANUET [Suspect]
     Active Substance: METFORMIN HYDROCHLORIDE\SITAGLIPTIN PHOSPHATE
     Dosage: 50/500
     Route: 048
     Dates: start: 2017

REACTIONS (4)
  - Expired product administered [Unknown]
  - Hospitalisation [Unknown]
  - Product commingling [Unknown]
  - Malaise [Unknown]

NARRATIVE: CASE EVENT DATE: 2017
